FAERS Safety Report 5017088-X (Version None)
Quarter: 2006Q2

REPORT INFORMATION
  Report Type: 
  Country: None (occurrence: None)
  Receive Date: 20060602
  Receipt Date: 20041220
  Transmission Date: 20061013
  Serious: Yes (Hospitalization)
  Sender: FDA-Public Use
  Company Number: GB-NOVOPROD-241223

PATIENT
  Age: 73 Year
  Sex: Male
  Weight: 84 kg

DRUGS (18)
  1. NOVOSEVEN [Suspect]
     Indication: POST PROCEDURAL HAEMORRHAGE
     Dosage: 40 UG/KG, SINGLE
     Route: 042
     Dates: start: 20041217, end: 20041217
  2. FLUCLOXACILLIN [Concomitant]
     Dosage: 5 MG, UNK
     Route: 042
     Dates: start: 20041217, end: 20041218
  3. GENTAMICIN [Concomitant]
     Dosage: 166 MG, QD
     Route: 042
     Dates: start: 20041217, end: 20041217
  4. MORPHINE SULFATE [Concomitant]
     Dosage: UNK, QD
     Route: 042
     Dates: start: 20041217, end: 20041218
  5. PROPOFOL [Concomitant]
     Dates: start: 20041217, end: 20041218
  6. FRUSEMIDE [Concomitant]
     Dosage: 40 MG, QD
     Route: 048
     Dates: start: 20041217
  7. AMILORIDE [Concomitant]
     Dosage: 5 MG, QD
     Route: 048
     Dates: start: 20041217
  8. PARACETAMOL [Concomitant]
     Dosage: 4 G, QD
     Route: 048
     Dates: start: 20041217
  9. TRAMADOL HCL [Concomitant]
     Dosage: 150 MG, QD
     Route: 048
     Dates: start: 20041217
  10. SENNA [Concomitant]
     Dosage: 2 TAB, QD
     Route: 048
     Dates: start: 20041217
  11. ENOXAPARIN SODIUM [Concomitant]
     Dosage: 80 MG, QD
     Route: 048
     Dates: start: 20041217
  12. ASPIRIN [Concomitant]
     Dosage: 225 MG, QD
     Route: 048
     Dates: start: 20010824
  13. ATENOLOL [Concomitant]
     Dosage: 25 MG, QD
     Route: 048
     Dates: start: 20040513
  14. ROSUVASTATIN [Concomitant]
     Dosage: 10 MG, QD
     Route: 048
     Dates: start: 20040505
  15. CYCLIZINE [Concomitant]
     Dosage: 50 MG, QD
     Route: 048
     Dates: start: 20041218
  16. TEMAZEPAM [Concomitant]
     Dosage: 10 MG, QD
     Route: 048
     Dates: start: 20041218
  17. HYOSCINE HBR HYT [Concomitant]
     Dosage: UNK, QD
     Route: 030
     Dates: start: 20041217, end: 20041217
  18. HYDRALAZINE HCL [Concomitant]
     Dosage: 20 MG, QD
     Route: 042
     Dates: start: 20041218, end: 20041218

REACTIONS (2)
  - ARRHYTHMIA SUPRAVENTRICULAR [None]
  - LACUNAR INFARCTION [None]
